FAERS Safety Report 10038014 (Version 1)
Quarter: 2014Q1

REPORT INFORMATION
  Report Type: Spontaneous
  Country: US (occurrence: None)
  Receive Date: 20140306
  Receipt Date: 20140306
  Transmission Date: 20141002
  Serious: Yes (Other)
  Sender: FDA-Public Use
  Company Number: 163-21880-12120602

PATIENT
  Age: 78 Year
  Sex: Female

DRUGS (17)
  1. REVLIMID (LENALIDOMIDE) (10 MILLIGRAM, CAPSULES) [Suspect]
     Indication: PLASMA CELL MYELOMA
     Dosage: 10 MG, 1 IN 1 D, PO  12/ /2008 - UNKNOWN
     Route: 048
     Dates: start: 200812
  2. DONEPEZIL [Concomitant]
  3. TYLENOL (PARACETAMOL) [Concomitant]
  4. OXYCODONE [Concomitant]
  5. MVI [Concomitant]
  6. GABAPENTIN [Concomitant]
  7. CREON (NORTASE) [Concomitant]
  8. RANITIDINE [Concomitant]
  9. LEVOTHYROXINE [Concomitant]
  10. ASA (ACETYLSALICYLIC ACID) [Concomitant]
  11. ALLOPURINOL [Concomitant]
  12. HALOPRAM (OTHER THERAPEUTIC PRODUCTS) [Concomitant]
  13. OXYCONTIN (OXYODONE HYDROCHLORIDE) [Concomitant]
  14. LATANOPROST [Concomitant]
  15. CITALOPRAM [Concomitant]
  16. GERI-LANTA (ALUMINIUM HYDROXIDE) [Concomitant]
  17. LOPERAMIDE [Concomitant]

REACTIONS (1)
  - Neutropenia [None]
